FAERS Safety Report 15831015 (Version 4)
Quarter: 2019Q2

REPORT INFORMATION
  Report Type: Report from Study
  Country: CA (occurrence: CA)
  Receive Date: 20190116
  Receipt Date: 20190508
  Transmission Date: 20190711
  Serious: No
  Sender: FDA-Public Use
  Company Number: CA-ROCHE-2245033

PATIENT
  Age: 27 Year
  Sex: Female

DRUGS (5)
  1. GABAPENTIN. [Concomitant]
     Active Substance: GABAPENTIN
     Dosage: ONGOING-YES
     Route: 065
  2. OCREVUS [Suspect]
     Active Substance: OCRELIZUMAB
     Indication: RELAPSING-REMITTING MULTIPLE SCLEROSIS
     Dosage: 300 MG AT DAY 0 AND 14, THEN 600 MG EVERY 6 MONTH ;ONGOING: YES
     Route: 042
     Dates: start: 20190108
  3. PANTOPRAZOLE [Concomitant]
     Active Substance: PANTOPRAZOLE
  4. MEMANTINE. [Concomitant]
     Active Substance: MEMANTINE
     Dosage: ONGOING-YES
     Route: 065
  5. AMITRIPTYLINE [Concomitant]
     Active Substance: AMITRIPTYLINE
     Indication: HEADACHE
     Route: 065
     Dates: start: 20190110

REACTIONS (7)
  - Abdominal pain [Recovered/Resolved]
  - Sputum discoloured [Recovering/Resolving]
  - Throat irritation [Not Recovered/Not Resolved]
  - Cough [Recovering/Resolving]
  - Fatigue [Unknown]
  - Infusion related reaction [Not Recovered/Not Resolved]
  - Ear pruritus [Unknown]

NARRATIVE: CASE EVENT DATE: 20190108
